FAERS Safety Report 6084664-5 (Version None)
Quarter: 2009Q1

REPORT INFORMATION
  Report Type: 
  Country: None (occurrence: None)
  Receive Date: 20090217
  Receipt Date: 20090205
  Transmission Date: 20090719
  Serious: Yes (Life-Threatening, Disabling)
  Sender: FDA-Public Use
  Company Number: 2009AL000817

PATIENT
  Age: 60 Year
  Sex: Female

DRUGS (2)
  1. DILTIAZEM HYDROCHLORIDE [Suspect]
     Indication: HYPERTENSION
     Dosage: PO
     Route: 048
     Dates: start: 20090102, end: 20090110
  2. MULTIPLE, NONSPECIFIED [Concomitant]

REACTIONS (1)
  - STEVENS-JOHNSON SYNDROME [None]
